FAERS Safety Report 15261628 (Version 1)
Quarter: 2018Q3

REPORT INFORMATION
  Report Type: Spontaneous
  Country: US (occurrence: US)
  Receive Date: 20180719
  Receipt Date: 20180719
  Transmission Date: 20181010
  Serious: No
  Sender: FDA-Public Use
  Company Number: None

PATIENT
  Age: 67 Year
  Sex: Female

DRUGS (1)
  1. BARACLUDE [Suspect]
     Active Substance: ENTECAVIR

REACTIONS (4)
  - Underdose [None]
  - Drug dose omission [None]
  - Wrong technique in product usage process [None]
  - Product distribution issue [None]

NARRATIVE: CASE EVENT DATE: 20180719
